FAERS Safety Report 16801559 (Version 1)
Quarter: 2019Q3

REPORT INFORMATION
  Report Type: Spontaneous
  Country: US (occurrence: US)
  Receive Date: 20190912
  Receipt Date: 20190912
  Transmission Date: 20191005
  Serious: No
  Sender: FDA-Public Use
  Company Number: US-AMNEAL PHARMACEUTICALS-2019AMN00812

PATIENT

DRUGS (4)
  1. GABAPENTIN. [Suspect]
     Active Substance: GABAPENTIN
     Indication: PAIN
     Dosage: 2 CAPSULES, 3X/DAY
     Route: 048
     Dates: start: 201904
  2. RANITIDINE. [Concomitant]
     Active Substance: RANITIDINE
     Indication: PRODUCT USED FOR UNKNOWN INDICATION
     Dosage: 300 MG, ONCE IN THE NIGHT
  3. OMEPRAZOLE. [Concomitant]
     Active Substance: OMEPRAZOLE
     Indication: PRODUCT USED FOR UNKNOWN INDICATION
     Dosage: 40 MG, ONCE IN THE MORNING
  4. GABAPENTIN. [Suspect]
     Active Substance: GABAPENTIN
     Dosage: 1 CAPSULES, 3X/DAY
     Route: 048
     Dates: start: 201906

REACTIONS (4)
  - Erectile dysfunction [Not Recovered/Not Resolved]
  - Product use in unapproved indication [Unknown]
  - Orgasm abnormal [Not Recovered/Not Resolved]
  - Dizziness [Not Recovered/Not Resolved]

NARRATIVE: CASE EVENT DATE: 201904
